FAERS Safety Report 8784784 (Version 1)
Quarter: 2012Q4

REPORT INFORMATION
  Report Type: 
  Country: DE (occurrence: DE)
  Receive Date: 20120914
  Receipt Date: 20120914
  Transmission Date: 20130627
  Serious: Yes (Disabling, Other)
  Sender: FDA-Public Use
  Company Number: DE-SANOFI-AVENTIS-2012SA042748

PATIENT
  Age: 62 Year
  Sex: Female
  Weight: 130 kg

DRUGS (9)
  1. MULTAQ [Suspect]
     Indication: ATRIAL FIBRILLATION WITH RAPID VENTRICULAR RESPONSE
     Route: 048
     Dates: start: 2010, end: 2012
  2. METOPROLOL SUCCINATE [Concomitant]
     Indication: DRUG THERAPY
     Route: 048
     Dates: start: 20100104, end: 20110928
  3. SIMVASTATIN [Concomitant]
     Indication: HYPERCHOLESTEROLAEMIA
     Route: 048
     Dates: start: 20100107
  4. ACETYLSALICYLIC ACID [Concomitant]
     Indication: PLATELET AGGREGATION INHIBITION
     Route: 048
  5. VIANI [Concomitant]
     Indication: ASTHMA
     Route: 048
  6. L-THYROXIN [Concomitant]
     Indication: THYROID DISORDER
     Route: 048
  7. HYDROCHLOROTHIAZIDE [Concomitant]
     Indication: DIURETIC THERAPY
     Route: 048
     Dates: start: 20110516
  8. AMLODIPINE [Concomitant]
     Indication: DRUG USE FOR UNKNOWN INDICATION
     Route: 048
     Dates: start: 20110531
  9. SALBUTAMOL ^STADA^ [Concomitant]
     Indication: DRUG USE FOR UNKNOWN INDICATION
     Route: 048

REACTIONS (2)
  - Dyspnoea at rest [Recovered/Resolved]
  - Hepatobiliary disease [Unknown]
